FAERS Safety Report 11150639 (Version 3)
Quarter: 2015Q2

REPORT INFORMATION
  Report Type: Spontaneous
  Country: DE (occurrence: GB)
  Receive Date: 20150601
  Receipt Date: 20150626
  Transmission Date: 20150821
  Serious: Yes (Other)
  Sender: FDA-Public Use
  Company Number: GB-DRREDDYS-GER/UKI/15/0048138

PATIENT

DRUGS (2)
  1. OLANZAPINE 20MG TABLET [Suspect]
     Active Substance: OLANZAPINE
     Indication: WEIGHT INCREASED
     Dosage: START DATE : IN LAST YEAR
     Route: 048
     Dates: start: 2014
  2. OLANZAPINE 20MG TABLET [Suspect]
     Active Substance: OLANZAPINE
     Indication: SCHIZOPHRENIA

REACTIONS (4)
  - Musculoskeletal stiffness [Unknown]
  - Drug ineffective [Unknown]
  - Drug administration error [Unknown]
  - Schizophrenia [Unknown]
